FAERS Safety Report 23536297 (Version 2)
Quarter: 2024Q1

REPORT INFORMATION
  Report Type: Report from Study
  Country: US (occurrence: US)
  Receive Date: 20240219
  Receipt Date: 20240226
  Transmission Date: 20240409
  Serious: No
  Sender: FDA-Public Use
  Company Number: US-SA-SAC20240215001184

PATIENT
  Age: 67 Year
  Sex: Male

DRUGS (1)
  1. DUPILUMAB [Suspect]
     Active Substance: DUPILUMAB
     Indication: Dermatitis atopic
     Dosage: 300 MG, QOW
     Route: 058
     Dates: start: 20240105

REACTIONS (15)
  - Urinary tract infection [Recovering/Resolving]
  - Abdominal pain upper [Unknown]
  - Bladder pain [Unknown]
  - Chromaturia [Unknown]
  - Dermatitis [Not Recovered/Not Resolved]
  - Cough [Unknown]
  - Hair disorder [Unknown]
  - Rash [Not Recovered/Not Resolved]
  - Scab [Unknown]
  - Skin irritation [Unknown]
  - Erythema [Unknown]
  - Dermatitis atopic [Unknown]
  - Pruritus [Not Recovered/Not Resolved]
  - Skin exfoliation [Not Recovered/Not Resolved]
  - Condition aggravated [Not Recovered/Not Resolved]

NARRATIVE: CASE EVENT DATE: 20240101
